FAERS Safety Report 4470965-0 (Version None)
Quarter: 2004Q4

REPORT INFORMATION
  Report Type: 
  Country: None (occurrence: None)
  Receive Date: 20041011
  Receipt Date: 20040929
  Transmission Date: 20050328
  Serious: Yes (Death, Life-Threatening)
  Sender: FDA-Public Use
  Company Number: US-ABBOTT-04P-163-0276014-00

PATIENT
  Age: 48 Year
  Sex: Female

DRUGS (1)
  1. DILAUDID [Suspect]
     Indication: DRUG USE FOR UNKNOWN INDICATION
     Dosage: 55 CC BAG; CONCENTRATION 1CC FLUID
     Route: 042
     Dates: end: 20040801

REACTIONS (3)
  - CARDIO-RESPIRATORY ARREST [None]
  - COMA [None]
  - LOSS OF CONSCIOUSNESS [None]
